FAERS Safety Report 8995491 (Version 1)
Quarter: 2013Q1

REPORT INFORMATION
  Report Type: Spontaneous
  Country: US (occurrence: US)
  Receive Date: 20130103
  Receipt Date: 20130103
  Transmission Date: 20140127
  Serious: No
  Sender: FDA-Public Use
  Company Number: US-ABBOTT-12P-163-0949074-00

PATIENT
  Sex: Female
  Weight: 47.67 kg

DRUGS (3)
  1. SYNTHROID [Suspect]
     Indication: HYPOTHYROIDISM
  2. SYNTHROID [Suspect]
     Indication: HYPOTHYROIDISM
  3. IMURAN [Suspect]
     Indication: HEPATIC ENZYME INCREASED
     Dates: start: 2012

REACTIONS (4)
  - Coeliac disease [Not Recovered/Not Resolved]
  - Decreased appetite [Recovered/Resolved]
  - Hepatic enzyme increased [Recovering/Resolving]
  - Nausea [Recovered/Resolved]
